FAERS Safety Report 5480510-9 (Version None)
Quarter: 2007Q4

REPORT INFORMATION
  Report Type: 
  Country: None (occurrence: None)
  Receive Date: 20071004
  Receipt Date: 20071004
  Transmission Date: 20080405
  Serious: Yes (Other)
  Sender: FDA-Public Use
  Company Number: None

PATIENT
  Age: 48 Year
  Sex: Female
  Weight: 56.6996 kg

DRUGS (1)
  1. FINASTERIDE [Suspect]
     Indication: ALOPECIA
     Dosage: 1.25 MGS DAILY PO
     Route: 048
     Dates: start: 20061029, end: 20071003

REACTIONS (1)
  - MAJOR DEPRESSION [None]
